FAERS Safety Report 8276864-0 (Version None)
Quarter: 2012Q2

REPORT INFORMATION
  Report Type: 
  Country: None (occurrence: None)
  Receive Date: 20120412
  Receipt Date: 20120409
  Transmission Date: 20120825
  Serious: Yes (Hospitalization)
  Sender: FDA-Public Use
  Company Number: US-ACTELION-A-NJ2012-63782

PATIENT

DRUGS (2)
  1. VENTAVIS [Suspect]
     Indication: PULMONARY ARTERIAL HYPERTENSION
     Dosage: 5X/DAY
     Route: 055
     Dates: start: 20111213
  2. ADCIRCA [Concomitant]

REACTIONS (5)
  - CARDIAC ABLATION [None]
  - DRUG INEFFECTIVE [None]
  - FATIGUE [None]
  - ATRIAL FIBRILLATION [None]
  - DYSPNOEA [None]
